FAERS Safety Report 19270483 (Version 3)
Quarter: 2022Q3

REPORT INFORMATION
  Report Type: Report from Study
  Country: US (occurrence: US)
  Receive Date: 20210518
  Receipt Date: 20220920
  Transmission Date: 20221027
  Serious: Yes (Hospitalization)
  Sender: FDA-Public Use
  Company Number: US-TAKEDA-2021TUS030802

PATIENT
  Sex: Female
  Weight: 93 kg

DRUGS (1)
  1. PONATINIB [Suspect]
     Active Substance: PONATINIB
     Indication: Acute lymphocytic leukaemia
     Dosage: UNK UNK, QD
     Route: 065

REACTIONS (2)
  - Platelet count decreased [Unknown]
  - Blood glucose increased [Unknown]
